FAERS Safety Report 7608355-1 (Version None)
Quarter: 2011Q3

REPORT INFORMATION
  Report Type: 
  Country: None (occurrence: None)
  Receive Date: 20110714
  Receipt Date: 20110630
  Transmission Date: 20111222
  Serious: Yes (Hospitalization, Other)
  Sender: FDA-Public Use
  Company Number: US-JNJFOC-20110409794

PATIENT
  Sex: Female

DRUGS (6)
  1. CELEXA [Concomitant]
  2. NEXIUM [Concomitant]
  3. XANAX [Concomitant]
  4. VITAMIN TAB [Concomitant]
  5. LOVAZA [Concomitant]
  6. REMICADE [Suspect]
     Indication: COLITIS ULCERATIVE
     Route: 042
     Dates: start: 20090901, end: 20110421

REACTIONS (1)
  - COLON CANCER [None]
